FAERS Safety Report 4525929-5 (Version None)
Quarter: 2004Q4

REPORT INFORMATION
  Report Type: 
  Country: None (occurrence: None)
  Receive Date: 20041124
  Receipt Date: 20040526
  Transmission Date: 20050328
  Serious: Yes (Other)
  Sender: FDA-Public Use
  Company Number: 2004026562

PATIENT
  Sex: Female

DRUGS (3)
  1. TIKOSYN [Suspect]
     Indication: ILL-DEFINED DISORDER
     Dosage: 500 MCG (250 MCG, 2 IN 1 D)
  2. AMOXICILLIN [Concomitant]
  3. FLUCONAZOLE [Concomitant]

REACTIONS (4)
  - BREAST PAIN [None]
  - MASTECTOMY [None]
  - MUSCULOSKELETAL CHEST PAIN [None]
  - STOMACH DISCOMFORT [None]
